FAERS Safety Report 9012771 (Version 1)
Quarter: 2013Q1

REPORT INFORMATION
  Report Type: Spontaneous
  Country: PT (occurrence: PT)
  Receive Date: 20130114
  Receipt Date: 20130114
  Transmission Date: 20140127
  Serious: Yes (Other)
  Sender: FDA-Public Use
  Company Number: PT-TEVA-380096ISR

PATIENT
  Sex: Female

DRUGS (2)
  1. FLUOXETINE [Suspect]
     Route: 048
  2. REDUCTIL [Interacting]
     Route: 048

REACTIONS (2)
  - Cerebral vasoconstriction [Recovered/Resolved]
  - Drug interaction [Recovered/Resolved]
